FAERS Safety Report 8433879-7 (Version None)
Quarter: 2012Q2

REPORT INFORMATION
  Report Type: 
  Country: None (occurrence: None)
  Receive Date: 20120613
  Receipt Date: 20120607
  Transmission Date: 20120825
  Serious: Yes (Other)
  Sender: FDA-Public Use
  Company Number: CN-PFIZER INC-2012137868

PATIENT
  Age: 56 Year
  Sex: Female

DRUGS (3)
  1. EPIRUBICIN HYDROCHLORIDE [Suspect]
     Indication: GASTRIC CANCER
     Dosage: 30 MG, 1X/DAY
     Route: 041
     Dates: start: 20100921, end: 20100927
  2. OXALIPLATIN [Suspect]
     Indication: GASTRIC CANCER
     Dosage: UNK
  3. FLUOROURACIL [Suspect]
     Indication: GASTRIC CANCER
     Dosage: UNK

REACTIONS (1)
  - LIVER DISORDER [None]
